FAERS Safety Report 7522431-3 (Version None)
Quarter: 2011Q2

REPORT INFORMATION
  Report Type: 
  Country: None (occurrence: None)
  Receive Date: 20110603
  Receipt Date: 20110527
  Transmission Date: 20111010
  Serious: Yes (Life-Threatening, Hospitalization)
  Sender: FDA-Public Use
  Company Number: JP-CEPHALON-2011002726

PATIENT
  Age: 58 Year
  Sex: Male

DRUGS (1)
  1. BENDAMUSTINE HCL [Suspect]
     Route: 042
     Dates: start: 20110414, end: 20110415

REACTIONS (1)
  - PNEUMOCYSTIS JIROVECI PNEUMONIA [None]
